FAERS Safety Report 26060791 (Version 1)
Quarter: 2025Q4

REPORT INFORMATION
  Report Type: Spontaneous
  Country: US (occurrence: US)
  Receive Date: 20251118
  Receipt Date: 20251118
  Transmission Date: 20260117
  Serious: Yes (Other)
  Sender: NOVARTIS
  Company Number: US-002147023-NVSC2025US174778

PATIENT
  Age: 88 Year
  Sex: Male

DRUGS (2)
  1. MEKINIST [Suspect]
     Active Substance: TRAMETINIB DIMETHYL SULFOXIDE
     Indication: Hairy cell leukaemia
     Dosage: 2 MG, QD
     Route: 048
     Dates: start: 202509
  2. TAFINLAR [Suspect]
     Active Substance: DABRAFENIB MESYLATE
     Indication: Hairy cell leukaemia
     Dosage: 150 MG, BID
     Route: 048
     Dates: start: 202509

REACTIONS (3)
  - Gastrointestinal haemorrhage [Unknown]
  - Diverticulitis [Unknown]
  - Off label use [Unknown]

NARRATIVE: CASE EVENT DATE: 20251001
